FAERS Safety Report 10883121 (Version 1)
Quarter: 2015Q1

REPORT INFORMATION
  Report Type: Spontaneous
  Country: BR (occurrence: BR)
  Receive Date: 20150303
  Receipt Date: 20150303
  Transmission Date: 20150721
  Serious: Yes (Hospitalization, Other)
  Sender: FDA-Public Use
  Company Number: BR-ELI_LILLY_AND_COMPANY-BR201502006848

PATIENT
  Sex: Male

DRUGS (2)
  1. CEPHALEXIN HYDROCHLORIDE [Suspect]
     Active Substance: CEPHALEXIN HYDROCHLORIDE
     Indication: LOCALISED INFECTION
     Dosage: UNK, TID
     Route: 065
     Dates: start: 2012, end: 2012
  2. BENZETACIL /00000904/ [Suspect]
     Active Substance: PENICILLIN G BENZATHINE
     Indication: LOCALISED INFECTION
     Dosage: 1 DF, SINGLE
     Route: 065
     Dates: start: 2012, end: 2012

REACTIONS (6)
  - Sepsis [Unknown]
  - Delusion [Unknown]
  - Gait disturbance [Unknown]
  - Drug hypersensitivity [Unknown]
  - Prosopagnosia [Unknown]
  - Cerebrovascular accident [Unknown]

NARRATIVE: CASE EVENT DATE: 2012
